FAERS Safety Report 5102623-3 (Version None)
Quarter: 2006Q3

REPORT INFORMATION
  Report Type: 
  Country: None (occurrence: None)
  Receive Date: 20060907
  Receipt Date: 20060824
  Transmission Date: 20061208
  Serious: Yes (Hospitalization)
  Sender: FDA-Public Use
  Company Number: 060001L06USA

PATIENT
  Age: 30 Year
  Sex: Female

DRUGS (3)
  1. CLOMIPHENE CITRATE [Suspect]
     Indication: OVULATION INDUCTION
     Dosage: 50 MG, 1 IN 1 CYCLE
  2. CHORIONIC GONADORTOPIN INJ [Suspect]
     Dosage: 3300 IU
  3. LETROZOLE [Concomitant]

REACTIONS (21)
  - ABORTION MISSED [None]
  - ALANINE AMINOTRANSFERASE INCREASED [None]
  - ASPARTATE AMINOTRANSFERASE INCREASED [None]
  - BLOOD BILIRUBIN INCREASED [None]
  - BLOOD CHLORIDE DECREASED [None]
  - BLOOD HUMAN CHORIONIC GONADOTROPIN INCREASED [None]
  - BLOOD OSMOLARITY DECREASED [None]
  - DIZZINESS [None]
  - DRUG EXPOSURE DURING PREGNANCY [None]
  - HYPONATRAEMIA [None]
  - MICTURITION FREQUENCY DECREASED [None]
  - MUSCULAR WEAKNESS [None]
  - NAUSEA [None]
  - NEUROLOGICAL SYMPTOM [None]
  - PORPHYRIA ACUTE [None]
  - PROGESTERONE INCREASED [None]
  - SOMNOLENCE [None]
  - URINE CHLORIDE DECREASED [None]
  - URINE DELTA AMINOLEVULINATE INCREASED [None]
  - URINE OSMOLARITY DECREASED [None]
  - URINE PORPHOBILINOGEN INCREASED [None]
